FAERS Safety Report 14680788 (Version 1)
Quarter: 2018Q1

REPORT INFORMATION
  Report Type: Spontaneous
  Country: US (occurrence: US)
  Receive Date: 20180324
  Receipt Date: 20180324
  Transmission Date: 20180509
  Serious: No
  Sender: FDA-Public Use
  Company Number: None

PATIENT
  Age: 48 Year
  Sex: Male
  Weight: 79.5 kg

DRUGS (1)
  1. BUPRENORPHINE/NALOXONE [Suspect]
     Active Substance: BUPRENORPHINE\NALOXONE
     Indication: DRUG USE DISORDER
     Route: 048
     Dates: start: 20160809

REACTIONS (4)
  - Product colour issue [None]
  - Somnolence [None]
  - Withdrawal syndrome [None]
  - Therapy non-responder [None]

NARRATIVE: CASE EVENT DATE: 20161004
